FAERS Safety Report 6793228-7 (Version None)
Quarter: 2010Q2

REPORT INFORMATION
  Report Type: 
  Country: None (occurrence: None)
  Receive Date: 20100624
  Receipt Date: 20091217
  Transmission Date: 20101027
  Serious: Yes (Other)
  Sender: FDA-Public Use
  Company Number: US-MYLANLABS-2009S1015421

PATIENT
  Age: 23 Year
  Sex: Male
  Weight: 85.73 kg

DRUGS (5)
  1. CLOZAPINE [Suspect]
     Indication: SCHIZOPHRENIA
     Route: 048
     Dates: start: 20090701, end: 20090924
  2. CLOZAPINE [Suspect]
     Route: 048
     Dates: start: 20090701, end: 20090924
  3. RISPERDAL [Concomitant]
     Route: 048
     Dates: start: 20090801
  4. COGENTIN [Concomitant]
  5. KLONOPIN [Concomitant]

REACTIONS (4)
  - BLOOD PRESSURE INCREASED [None]
  - GRANULOCYTOPENIA [None]
  - NAUSEA [None]
  - VOMITING [None]
